FAERS Safety Report 6293514-3 (Version None)
Quarter: 2009Q3

REPORT INFORMATION
  Report Type: 
  Country: None (occurrence: None)
  Receive Date: 20090729
  Receipt Date: 20090721
  Transmission Date: 20100115
  Serious: Yes (Other)
  Sender: FDA-Public Use
  Company Number: 2009SP016286

PATIENT
  Age: 47 Year
  Sex: Female

DRUGS (2)
  1. REBETOL [Suspect]
     Indication: HEPATITIS C
     Dosage: 200 MG; ; PO
     Route: 048
     Dates: start: 20081014, end: 20081217
  2. PEGASYS [Suspect]
     Indication: HEPATITIS C
     Dosage: 180 MG; QW; SC
     Route: 058
     Dates: start: 20081014, end: 20081217

REACTIONS (1)
  - LYMPHADENOPATHY [None]
